FAERS Safety Report 19512382 (Version 2)
Quarter: 2021Q3

REPORT INFORMATION
  Report Type: Spontaneous
  Country: JP (occurrence: JP)
  Receive Date: 20210709
  Receipt Date: 20210722
  Transmission Date: 20211014
  Serious: Yes (Other)
  Sender: FDA-Public Use
  Company Number: JP-AMGEN-JPNSP2021105578

PATIENT
  Age: 5 Decade
  Sex: Female

DRUGS (4)
  1. OXYCODONE [OXYCODONE HYDROCHLORIDE] [Concomitant]
     Active Substance: OXYCODONE HYDROCHLORIDE
     Dosage: 60 MILLIGRAM, QD
     Route: 058
  2. NALDEMEDINE [Concomitant]
     Active Substance: NALDEMEDINE
     Dosage: 0.2 MILLIGRAM, QD
     Route: 048
  3. PREGABALIN. [Concomitant]
     Active Substance: PREGABALIN
     Dosage: 75 MILLIGRAM, TID
     Route: 048
  4. RANMARK [Suspect]
     Active Substance: DENOSUMAB
     Indication: METASTASES TO BONE
     Dosage: 120 MILLIGRAM, QMO
     Route: 058

REACTIONS (2)
  - Neuralgia [Unknown]
  - Metastases to spine [Unknown]
